FAERS Safety Report 7122648-6 (Version None)
Quarter: 2010Q4

REPORT INFORMATION
  Report Type: 
  Country: None (occurrence: None)
  Receive Date: 20101103
  Receipt Date: 20101027
  Transmission Date: 20110411
  Serious: Yes (Hospitalization)
  Sender: FDA-Public Use
  Company Number: 2010SP057325

PATIENT
  Age: 80 Year
  Sex: Female

DRUGS (1)
  1. REMERON [Suspect]
     Indication: DEMENTIA WITH LEWY BODIES
     Dosage: 15 MG; QD; PO, 30 MG; ; PO, 15 MG; ; PO
     Route: 048

REACTIONS (3)
  - HALLUCINATION, VISUAL [None]
  - INSOMNIA [None]
  - THERAPY REGIMEN CHANGED [None]
